FAERS Safety Report 18277393 (Version 1)
Quarter: 2020Q3

REPORT INFORMATION
  Report Type: Report from Study
  Country: CA (occurrence: CA)
  Receive Date: 20200917
  Receipt Date: 20200917
  Transmission Date: 20201103
  Serious: Yes (Other)
  Sender: FDA-Public Use
  Company Number: CA-ACCORD-200961

PATIENT
  Age: 40 Year
  Sex: Female

DRUGS (6)
  1. CYCLOCORT [Concomitant]
     Active Substance: AMCINONIDE
  2. CLOBETASOL [Concomitant]
     Active Substance: CLOBETASOL
  3. SULFASALAZINE. [Concomitant]
     Active Substance: SULFASALAZINE
  4. CICLOSPORIN [Suspect]
     Active Substance: CYCLOSPORINE
     Indication: PRODUCT USED FOR UNKNOWN INDICATION
  5. DOVONEX [Concomitant]
     Active Substance: CALCIPOTRIENE
  6. METHOTREXATE. [Suspect]
     Active Substance: METHOTREXATE
     Indication: PRODUCT USED FOR UNKNOWN INDICATION

REACTIONS (5)
  - Drug ineffective [Unknown]
  - Infection [Unknown]
  - Osteomyelitis [Unknown]
  - Polyarthritis [Unknown]
  - Wound infection bacterial [Unknown]
